FAERS Safety Report 23157158 (Version 1)
Quarter: 2023Q4

REPORT INFORMATION
  Report Type: Spontaneous
  Country: CN (occurrence: None)
  Receive Date: 20231108
  Receipt Date: 20231108
  Transmission Date: 20240109
  Serious: Yes (Hospitalization, Other)
  Sender: FDA-Public Use
  Company Number: CN-Unichem Pharmaceuticals (USA) Inc-UCM202310-001358

PATIENT
  Age: 18 Year
  Sex: Female

DRUGS (18)
  1. QUETIAPINE [Suspect]
     Active Substance: QUETIAPINE
     Indication: Abnormal behaviour
     Dates: start: 20201225
  2. QUETIAPINE [Suspect]
     Active Substance: QUETIAPINE
     Indication: Tardive dyskinesia
     Dates: start: 20210104
  3. QUETIAPINE [Suspect]
     Active Substance: QUETIAPINE
     Dates: start: 20210116
  4. QUETIAPINE [Suspect]
     Active Substance: QUETIAPINE
     Dates: start: 20210118
  5. DIVALPROEX SODIUM [Suspect]
     Active Substance: DIVALPROEX SODIUM
     Indication: Tardive dyskinesia
     Dates: start: 20201225
  6. DIVALPROEX SODIUM [Suspect]
     Active Substance: DIVALPROEX SODIUM
     Dates: start: 20210104
  7. BACLOFEN [Suspect]
     Active Substance: BACLOFEN
     Indication: Tardive dyskinesia
     Dates: start: 20201225
  8. BACLOFEN [Suspect]
     Active Substance: BACLOFEN
     Dates: start: 20210104
  9. BACLOFEN [Suspect]
     Active Substance: BACLOFEN
     Dates: start: 20210116
  10. BACLOFEN [Suspect]
     Active Substance: BACLOFEN
     Dates: start: 20210118
  11. BACLOFEN [Suspect]
     Active Substance: BACLOFEN
     Dates: start: 20210125
  12. BACLOFEN [Suspect]
     Active Substance: BACLOFEN
     Dates: start: 20210301
  13. BACLOFEN [Suspect]
     Active Substance: BACLOFEN
     Dates: start: 20210630
  14. ZIPRASIDONE [Suspect]
     Active Substance: ZIPRASIDONE
     Indication: Abnormal behaviour
  15. ZIPRASIDONE [Suspect]
     Active Substance: ZIPRASIDONE
     Indication: Tardive dyskinesia
  16. TRIHEXYPHENIDYL HYDROCHLORIDE [Concomitant]
     Active Substance: TRIHEXYPHENIDYL HYDROCHLORIDE
     Indication: Tardive dyskinesia
  17. CELECOXIB [Concomitant]
     Active Substance: CELECOXIB
     Indication: Pain
     Dates: start: 20201225
  18. CELECOXIB [Concomitant]
     Active Substance: CELECOXIB
     Dates: start: 20210104

REACTIONS (6)
  - Gait disturbance [Recovered/Resolved]
  - Condition aggravated [Recovered/Resolved]
  - Tardive dyskinesia [Recovered/Resolved]
  - Drug withdrawal syndrome [Recovered/Resolved]
  - Product use in unapproved indication [Unknown]
  - Drug effective for unapproved indication [Unknown]
